FAERS Safety Report 14861326 (Version 2)
Quarter: 2018Q3

REPORT INFORMATION
  Report Type: Spontaneous
  Country: FR (occurrence: FR)
  Receive Date: 20180508
  Receipt Date: 20180720
  Transmission Date: 20181010
  Serious: Yes (Hospitalization)
  Sender: FDA-Public Use
  Company Number: FR-TEVA-2018-FR-890912

PATIENT
  Age: 44 Year
  Sex: Male

DRUGS (8)
  1. KARDEGIC [Concomitant]
     Active Substance: ASPIRIN DL-LYSINE
     Dosage: 1 DOSAGE FORMS DAILY;
     Route: 065
  2. CLAFORAN [Suspect]
     Active Substance: CEFOTAXIME SODIUM
     Dosage: 6 GRAM DAILY;
     Route: 065
     Dates: start: 20170609, end: 20180704
  3. BISOPROLOL (FUMARATE ACIDE DE) [Concomitant]
     Active Substance: BISOPROLOL FUMARATE
     Dosage: 5 MG IN THE MORNING, 2.5 MG IN THE EVENING
     Route: 065
  4. VANCOMYCINE [Suspect]
     Active Substance: VANCOMYCIN
     Route: 042
     Dates: start: 20170609
  5. SKENAN [Suspect]
     Active Substance: MORPHINE SULFATE
     Dosage: 20 MILLIGRAM DAILY;
     Route: 065
     Dates: start: 201706
  6. TRUVADA [Concomitant]
     Active Substance: EMTRICITABINE\TENOFOVIR DISOPROXIL FUMARATE
     Indication: HIV INFECTION
     Dosage: 1 DOSAGE FORMS DAILY; 200 MG/245 MG
     Route: 065
  7. VIRAMUNE [Concomitant]
     Active Substance: NEVIRAPINE
     Indication: HIV INFECTION
     Dosage: 200 MILLIGRAM DAILY;
     Route: 065
  8. TELMISARTAN. [Concomitant]
     Active Substance: TELMISARTAN
     Dosage: 80 MILLIGRAM DAILY;
     Route: 065

REACTIONS (2)
  - Pyrexia [Recovered/Resolved]
  - Toxic skin eruption [Recovered/Resolved]

NARRATIVE: CASE EVENT DATE: 20170630
